FAERS Safety Report 9032688 (Version 1)
Quarter: 2013Q1

REPORT INFORMATION
  Report Type: Spontaneous
  Country: US (occurrence: US)
  Receive Date: 20130128
  Receipt Date: 20130128
  Transmission Date: 20140127
  Serious: Yes (Other)
  Sender: FDA-Public Use
  Company Number: US-RANBAXY-2006US-03320

PATIENT
  Age: 28 Year
  Sex: Female

DRUGS (2)
  1. DOXYCYCLINE [Suspect]
     Indication: ASSISTED FERTILISATION
     Dosage: UNK
     Route: 065
  2. FLUOXETINE [Concomitant]
     Indication: DEPRESSION
     Dosage: UNK
     Route: 065

REACTIONS (2)
  - Thyroid disorder [Recovered/Resolved]
  - Papillary thyroid cancer [Recovered/Resolved]
